FAERS Safety Report 18551349 (Version 3)
Quarter: 2022Q3

REPORT INFORMATION
  Report Type: Spontaneous
  Country: US (occurrence: US)
  Receive Date: 20201126
  Receipt Date: 20220826
  Transmission Date: 20221027
  Serious: Yes (Other)
  Sender: FDA-Public Use
  Company Number: US-PFIZER INC-2020468539

PATIENT
  Age: 47 Year
  Sex: Female

DRUGS (3)
  1. DOCETAXEL [Suspect]
     Active Substance: DOCETAXEL
     Indication: Invasive lobular breast carcinoma
     Dosage: 160 MG, CYCLIC
     Route: 042
     Dates: start: 20160311, end: 201606
  2. DOCETAXEL [Suspect]
     Active Substance: DOCETAXEL
     Dosage: UNK
     Dates: start: 20160310, end: 20160512
  3. CYCLOPHOSPHAMIDE [Concomitant]
     Active Substance: CYCLOPHOSPHAMIDE
     Indication: Invasive lobular breast carcinoma
     Dosage: 1360 MG, CYCLIC
     Route: 042
     Dates: start: 20160311, end: 201606

REACTIONS (4)
  - Dacryostenosis acquired [Unknown]
  - Eye injury [Unknown]
  - Lacrimation increased [Unknown]
  - Lacrimal structure injury [Unknown]

NARRATIVE: CASE EVENT DATE: 20200602
